FAERS Safety Report 12993207 (Version 1)
Quarter: 2016Q4

REPORT INFORMATION
  Report Type: Spontaneous
  Country: US (occurrence: US)
  Receive Date: 20161202
  Receipt Date: 20161202
  Transmission Date: 20170207
  Serious: Yes (Other)
  Sender: FDA-Public Use
  Company Number: US-BAYER-2016-227960

PATIENT
  Age: 87 Year
  Sex: Female
  Weight: 56.7 kg

DRUGS (1)
  1. MIRALAX [Suspect]
     Active Substance: POLYETHYLENE GLYCOL 3350
     Indication: GASTROINTESTINAL DISORDER
     Dosage: CONSUMER TOOK IT 3 OR 4 TIMES DAILY
     Route: 048

REACTIONS (1)
  - Product use issue [Unknown]
